FAERS Safety Report 17101027 (Version 1)
Quarter: 2019Q4

REPORT INFORMATION
  Report Type: Spontaneous
  Country: CA (occurrence: CA)
  Receive Date: 20191202
  Receipt Date: 20191202
  Transmission Date: 20200122
  Serious: Yes (Hospitalization)
  Sender: FDA-Public Use
  Company Number: CA-ANIPHARMA-2019-CA-001719

PATIENT
  Age: 61 Year
  Sex: Male

DRUGS (12)
  1. CANDESARTAN. [Suspect]
     Active Substance: CANDESARTAN
     Indication: HYPERTENSION
     Dosage: 0 / DOSE TEXT: UNKNOWN, EVERY DAY
     Route: 048
     Dates: start: 2007
  2. SYMBICORT [Concomitant]
     Active Substance: BUDESONIDE\FORMOTEROL FUMARATE DIHYDRATE
     Dosage: UNK, BID
     Route: 055
     Dates: start: 201706
  3. ALVESCO [Concomitant]
     Active Substance: CICLESONIDE
     Dosage: UNKNOWN, EVERY DAY
     Route: 055
     Dates: start: 201706
  4. SINGULAIR [Concomitant]
     Active Substance: MONTELUKAST SODIUM
     Dosage: UNKNOWN, EVERY DAY
     Route: 048
     Dates: start: 2012
  5. VOLTAREN [Concomitant]
     Active Substance: DICLOFENAC SODIUM
     Dosage: UNK
     Route: 061
     Dates: start: 201707
  6. MIRTAZAPINE. [Concomitant]
     Active Substance: MIRTAZAPINE
     Dosage: UNKNOWN, EVERY DAY
     Route: 048
  7. BISOPROLOL [Suspect]
     Active Substance: BISOPROLOL
     Dosage: 0 / DOSE TEXT: UNKNOWN, EVERY DAY / 5 MG DAILY
     Route: 048
     Dates: start: 2007
  8. REACTINE [Concomitant]
     Dosage: UNKNOWN, EVERY DAY
     Route: 048
     Dates: start: 201707
  9. PANTOPRAZOLE [Suspect]
     Active Substance: PANTOPRAZOLE
     Dosage: 0 / DOSE TEXT: UNKNOWN, EVERY DAY / 40 MG DAILY
     Route: 048
     Dates: start: 2007
  10. XOLAIR [Suspect]
     Active Substance: OMALIZUMAB
     Dosage: 0 / 375 MG Q2WK / 375 MG Q2WK / UNK / 375 MG Q2WK / 375 MG Q2WK
     Route: 058
  11. VENTOLIN [Concomitant]
     Active Substance: ALBUTEROL SULFATE
     Dosage: UNK
     Route: 055
  12. PMS-GABAPENTIN [Concomitant]
     Active Substance: GABAPENTIN
     Dosage: UNKNOWN, TWO TIMES A DAY
     Route: 048
     Dates: start: 201609

REACTIONS (5)
  - Diaphragmatic disorder [Unknown]
  - Cough [Unknown]
  - Wound haemorrhage [Recovered/Resolved]
  - Gastric disorder [Unknown]
  - Lung disorder [Unknown]

NARRATIVE: CASE EVENT DATE: 20180302
